FAERS Safety Report 21408688 (Version 1)
Quarter: 2022Q4

REPORT INFORMATION
  Report Type: Spontaneous
  Country: JP (occurrence: JP)
  Receive Date: 20221004
  Receipt Date: 20221004
  Transmission Date: 20230113
  Serious: Yes (Other)
  Sender: FDA-Public Use
  Company Number: JP-NOVARTISPH-NVSJ2019JP008555

PATIENT
  Age: 65 Year
  Sex: Male

DRUGS (4)
  1. MELPHALAN [Suspect]
     Active Substance: MELPHALAN
     Indication: Primary amyloidosis
     Dosage: 200 MG/M2 (HIGH-DOSE)
     Route: 065
  2. MELPHALAN [Suspect]
     Active Substance: MELPHALAN
     Dosage: 6 MG, QD (FOR SIX DAYS PER COURSE, EIGHT COURSES)
     Route: 048
  3. DEXAMETHASONE [Suspect]
     Active Substance: DEXAMETHASONE
     Indication: Primary amyloidosis
     Dosage: 33 MG, QD (FOR FOUR DAYS PER COURSE, EIGHT COURSES)
     Route: 042
  4. THALIDOMIDE [Concomitant]
     Active Substance: THALIDOMIDE
     Indication: Primary amyloidosis
     Dosage: 50 MG, QD
     Route: 048

REACTIONS (3)
  - Lymphopenia [Recovered/Resolved]
  - Anaemia [Unknown]
  - Product use in unapproved indication [Unknown]
